FAERS Safety Report 24827788 (Version 4)
Quarter: 2025Q1

REPORT INFORMATION
  Report Type: Report from Study
  Country: US (occurrence: US)
  Receive Date: 20250109
  Receipt Date: 20250224
  Transmission Date: 20250408
  Serious: Yes (Other)
  Sender: ALNYLAM PHARMACEUTICALS
  Company Number: US-ALNYLAM PHARMACEUTICALS, INC.-ALN-2025-000034

PATIENT

DRUGS (10)
  1. GIVLAARI [Suspect]
     Active Substance: GIVOSIRAN SODIUM
     Indication: Porphyria acute
     Dosage: 0.87 MILLILITER (189 MILLIGRAM/MILLILITER), MONTHLY
     Route: 058
     Dates: start: 20201029, end: 20201029
  2. TUMS ULTRA [Concomitant]
     Active Substance: CALCIUM CARBONATE
     Indication: Product used for unknown indication
     Route: 065
  3. LETROZOLE [Concomitant]
     Active Substance: LETROZOLE
     Indication: Product used for unknown indication
     Route: 065
  4. POTASSIUM CHLORIDE [Concomitant]
     Active Substance: POTASSIUM CHLORIDE
     Indication: Product used for unknown indication
     Route: 065
  5. ALBUTEROL SULFATE [Concomitant]
     Active Substance: ALBUTEROL SULFATE
     Indication: Product used for unknown indication
     Route: 065
  6. ELIQUIS [Concomitant]
     Active Substance: APIXABAN
     Indication: Product used for unknown indication
     Route: 065
  7. CLONAZEPAM [Concomitant]
     Active Substance: CLONAZEPAM
     Indication: Product used for unknown indication
     Route: 065
  8. EPINEPHRINE [Concomitant]
     Active Substance: EPINEPHRINE
     Indication: Product used for unknown indication
     Route: 065
  9. VITAMINS [Concomitant]
     Active Substance: VITAMINS
     Indication: Product used for unknown indication
     Route: 065
  10. MODERNA COVID-19 VACCINE [Concomitant]
     Active Substance: ELASOMERAN
     Indication: Product used for unknown indication
     Route: 065

REACTIONS (21)
  - Pneumonia [Unknown]
  - Abnormal loss of weight [Unknown]
  - Abdominal pain [Unknown]
  - Back pain [Unknown]
  - Catheter site cellulitis [Unknown]
  - Catheter site pruritus [Unknown]
  - Blood pressure increased [Unknown]
  - Breath sounds abnormal [Unknown]
  - Dyspnoea exertional [Unknown]
  - Urinary incontinence [Unknown]
  - Anxiety [Unknown]
  - Depression [Unknown]
  - Sleep disorder due to a general medical condition [Unknown]
  - Ill-defined disorder [Unknown]
  - Catheter site pain [Unknown]
  - Catheter site infection [Unknown]
  - Drug ineffective [Unknown]
  - Abdominal pain upper [Unknown]
  - Hypersomnia [Unknown]
  - Nausea [Unknown]
  - Fatigue [Unknown]
